FAERS Safety Report 6024134-3 (Version None)
Quarter: 2008Q4

REPORT INFORMATION
  Report Type: 
  Country: None (occurrence: None)
  Receive Date: 20081224
  Receipt Date: 20081211
  Transmission Date: 20090506
  Serious: Yes (Hospitalization)
  Sender: FDA-Public Use
  Company Number: KV200801113

PATIENT
  Age: 71 Year
  Sex: Male

DRUGS (3)
  1. MORPHINE SULFATE [Suspect]
     Indication: CANCER PAIN
     Dosage: 15 MG, BID, ORAL
     Route: 048
     Dates: start: 20081016, end: 20081107
  2. MORPHINE SULFATE [Suspect]
     Indication: CANCER PAIN
     Dosage: ONE TO TWO TABS EVERY 4-6HRS., ORAL
     Route: 048
     Dates: start: 20081016, end: 20081107
  3. PROPRANOLOL [Concomitant]

REACTIONS (6)
  - DEHYDRATION [None]
  - DISORIENTATION [None]
  - FALL [None]
  - GAIT DISTURBANCE [None]
  - HYPERSOMNIA [None]
  - PRODUCT QUALITY ISSUE [None]
